FAERS Safety Report 23283609 (Version 1)
Quarter: 2023Q4

REPORT INFORMATION
  Report Type: Spontaneous
  Country: US (occurrence: US)
  Receive Date: 20231211
  Receipt Date: 20231211
  Transmission Date: 20240109
  Serious: Yes (Other)
  Sender: FDA-Public Use
  Company Number: US-CLOVIS ONCOLOGY-CLO-2021-000331

PATIENT
  Age: 72 Year
  Sex: Female

DRUGS (9)
  1. RUCAPARIB [Suspect]
     Active Substance: RUCAPARIB
     Indication: Ovarian cancer
     Dosage: 600 MILLIGRAM, BID
     Route: 048
     Dates: start: 20180309, end: 20210218
  2. RUCAPARIB [Suspect]
     Active Substance: RUCAPARIB
     Dosage: 500 MILLIGRAM, BID
     Route: 048
     Dates: start: 20210304, end: 202311
  3. RUCAPARIB [Suspect]
     Active Substance: RUCAPARIB
     Dosage: ONLY THE EVENING DOSE
     Route: 048
     Dates: start: 202311, end: 202311
  4. RUCAPARIB [Suspect]
     Active Substance: RUCAPARIB
     Dosage: 500 MILLIGRAM, BID
     Route: 048
     Dates: start: 202311
  5. ROSUVASTATIN [Concomitant]
     Active Substance: ROSUVASTATIN
     Indication: Product used for unknown indication
  6. HYDROCHLOROTHIAZIDE\LOSARTAN [Concomitant]
     Active Substance: HYDROCHLOROTHIAZIDE\LOSARTAN
     Indication: Product used for unknown indication
     Dosage: 50MG / 12.5 MG (1 TAB DAILY)
  7. CLONIDINE [Concomitant]
     Active Substance: CLONIDINE
     Indication: Product used for unknown indication
     Dosage: 0.2 MILLIGRAM QHS
  8. LOVENOX [Concomitant]
     Active Substance: ENOXAPARIN SODIUM
     Indication: Product used for unknown indication
     Dosage: 40 MG/0.4 ML
  9. VITAMINS NOS [Concomitant]
     Active Substance: VITAMINS
     Indication: Product used for unknown indication
     Dosage: 1 TAB DAILY

REACTIONS (2)
  - Coronary artery disease [Recovered/Resolved]
  - Pyrexia [Not Recovered/Not Resolved]

NARRATIVE: CASE EVENT DATE: 20201001
